FAERS Safety Report 6123993-3 (Version None)
Quarter: 2009Q1

REPORT INFORMATION
  Report Type: 
  Country: None (occurrence: None)
  Receive Date: 20090318
  Receipt Date: 20090318
  Transmission Date: 20090719
  Serious: No
  Sender: FDA-Public Use
  Company Number: None

PATIENT
  Sex: Female
  Weight: 77.73 kg

DRUGS (14)
  1. LISINOPRIL [Suspect]
     Dosage: 5MG TABLET 5 MG QD
     Route: 048
     Dates: start: 20081027, end: 20090317
  2. ALBUTEROL MDI (ALBUTEROL INHALER) [Concomitant]
  3. AMOXICILLIN [Concomitant]
  4. ASPIRIN [Concomitant]
  5. CALTRATE + D (CALCIUM CARBONATE / VIT D) [Concomitant]
  6. CELEXA [Concomitant]
  7. DILTIAZEM [Concomitant]
  8. DOXEPIN (DOXEPIN HCL) [Concomitant]
  9. ERGOCALCIFEROL [Concomitant]
  10. FLONASE [Concomitant]
  11. FLUNISOLIDE [Concomitant]
  12. METFORMIN [Concomitant]
  13. SIMVASTATIN [Concomitant]
  14. TRANXENE [Concomitant]

REACTIONS (1)
  - COUGH [None]
